FAERS Safety Report 14837134 (Version 1)
Quarter: 2018Q2

REPORT INFORMATION
  Report Type: Spontaneous
  Country: AU (occurrence: AU)
  Receive Date: 20180502
  Receipt Date: 20180502
  Transmission Date: 20180711
  Serious: Yes (Other)
  Sender: FDA-Public Use
  Company Number: AU-ASTRAZENECA-2018SE58284

PATIENT
  Age: 33305 Day
  Sex: Female

DRUGS (1)
  1. FASLODEX [Suspect]
     Active Substance: FULVESTRANT
     Dosage: 500
     Route: 030
     Dates: start: 20180301

REACTIONS (2)
  - Disease progression [Unknown]
  - Malignant ascites [Unknown]

NARRATIVE: CASE EVENT DATE: 20180330
